FAERS Safety Report 23193787 (Version 1)
Quarter: 2023Q4

REPORT INFORMATION
  Report Type: Spontaneous
  Country: US (occurrence: US)
  Receive Date: 20231116
  Receipt Date: 20231116
  Transmission Date: 20240110
  Serious: Yes (Hospitalization, Other)
  Sender: FDA-Public Use
  Company Number: US-009507513-2311USA005671

PATIENT
  Age: 16 Year
  Sex: Male

DRUGS (3)
  1. KEYTRUDA [Suspect]
     Active Substance: PEMBROLIZUMAB
     Indication: Osteosarcoma metastatic
     Dosage: UNK
  2. LENVATINIB [Concomitant]
     Active Substance: LENVATINIB
     Indication: Osteosarcoma metastatic
  3. REGORAFENIB [Concomitant]
     Active Substance: REGORAFENIB
     Indication: Osteosarcoma metastatic
     Dosage: UNK

REACTIONS (1)
  - Partial seizures [Recovering/Resolving]
